FAERS Safety Report 17212510 (Version 1)
Quarter: 2019Q4

REPORT INFORMATION
  Report Type: Spontaneous
  Country: US (occurrence: US)
  Receive Date: 20191230
  Receipt Date: 20191230
  Transmission Date: 20200122
  Serious: No
  Sender: FDA-Public Use
  Company Number: US-ASTRAZENECA-2019SF72654

PATIENT
  Sex: Female
  Weight: 93.4 kg

DRUGS (7)
  1. ATORVASTATIN [Concomitant]
     Active Substance: ATORVASTATIN
     Indication: DIABETES MELLITUS
     Route: 048
  2. VITAMINS [Concomitant]
     Active Substance: VITAMINS
     Indication: VITAMIN SUPPLEMENTATION
     Dosage: UNKNOWN
     Route: 048
     Dates: start: 2009
  3. HUMULIN RU500 [Concomitant]
     Indication: TYPE 2 DIABETES MELLITUS
     Route: 058
  4. LEVOTHYROXIN [Concomitant]
     Active Substance: LEVOTHYROXINE
     Indication: THYROID DISORDER
     Route: 048
  5. HUMULIN RU500 [Concomitant]
     Route: 058
  6. LISINOPRIL. [Concomitant]
     Active Substance: LISINOPRIL
  7. BYDUREON BCISE [Suspect]
     Active Substance: EXENATIDE
     Indication: TYPE 2 DIABETES MELLITUS
     Route: 058
     Dates: start: 2017

REACTIONS (3)
  - Diabetes mellitus inadequate control [Unknown]
  - Injection site scar [Unknown]
  - Device issue [Unknown]
